FAERS Safety Report 5891818-7 (Version None)
Quarter: 2008Q3

REPORT INFORMATION
  Report Type: 
  Country: None (occurrence: None)
  Receive Date: 20080908
  Receipt Date: 20080725
  Transmission Date: 20090109
  Serious: No
  Sender: FDA-Public Use
  Company Number: 002#2#2008-00616

PATIENT
  Age: 88 Year
  Sex: Male

DRUGS (5)
  1. NEUPRO [Suspect]
     Indication: PARKINSON'S DISEASE
     Dosage: 6MG/24H, 1 IN 1 D, TRANSDERMAL
     Route: 062
     Dates: start: 20071001, end: 20080718
  2. MIRAPEX [Concomitant]
  3. AZILECT [Concomitant]
  4. MITROFIRINE [Concomitant]
  5. SYNTHROID [Concomitant]

REACTIONS (2)
  - PARAESTHESIA [None]
  - PHARMACEUTICAL PRODUCT COMPLAINT [None]
